FAERS Safety Report 11009669 (Version 1)
Quarter: 2015Q2

REPORT INFORMATION
  Report Type: Other
  Country: FR (occurrence: FR)
  Receive Date: 20150410
  Receipt Date: 20150410
  Transmission Date: 20150821
  Serious: Yes (Hospitalization, Other)
  Sender: FDA-Public Use
  Company Number: FR-TAKEDA-2015TJP005730

PATIENT
  Age: 83 Year
  Sex: Male

DRUGS (10)
  1. WARFARIN [Suspect]
     Active Substance: WARFARIN
     Indication: ATRIAL FIBRILLATION
     Dosage: 4 MG, QD
     Route: 048
     Dates: start: 201402, end: 20150309
  2. ARESTAL /00384303/ [Suspect]
     Active Substance: LOPERAMIDE OXIDE
     Indication: PRODUCT USED FOR UNKNOWN INDICATION
     Dosage: 1 MG, BID
     Route: 048
     Dates: end: 20150310
  3. LANZOR [Suspect]
     Active Substance: LANSOPRAZOLE
     Indication: PRODUCT USED FOR UNKNOWN INDICATION
     Dosage: 15 MG, QD
     Route: 048
     Dates: end: 20150310
  4. DAFALGAN [Concomitant]
     Active Substance: ACETAMINOPHEN
     Dosage: UNK
     Dates: end: 20150310
  5. PREV MEDS [Concomitant]
     Dosage: UNK
  6. ALLOPURINOL. [Suspect]
     Active Substance: ALLOPURINOL
     Indication: PRODUCT USED FOR UNKNOWN INDICATION
     Dosage: 200 MG, QD
     Route: 048
     Dates: start: 2014
  7. COAPROVEL [Suspect]
     Active Substance: HYDROCHLOROTHIAZIDE\IRBESARTAN
     Indication: HYPERTENSION
     Dosage: 1 DF, QD
     Route: 048
     Dates: start: 201404, end: 20150310
  8. LANTUS [Suspect]
     Active Substance: INSULIN GLARGINE
     Indication: PRODUCT USED FOR UNKNOWN INDICATION
     Dosage: 22 IU, QD
     Route: 058
     Dates: start: 201402, end: 20150310
  9. JANUMET [Suspect]
     Active Substance: METFORMIN HYDROCHLORIDE\SITAGLIPTIN PHOSPHATE
     Indication: DIABETES MELLITUS
     Dosage: 2 DF, QD
     Route: 048
     Dates: start: 201404, end: 20150313
  10. SOTALEX [Concomitant]
     Active Substance: SOTALOL
     Dosage: UNK

REACTIONS (7)
  - Thrombocytopenic purpura [Not Recovered/Not Resolved]
  - Klebsiella infection [None]
  - Thrombocytopenia [Not Recovered/Not Resolved]
  - Haematoma [Not Recovered/Not Resolved]
  - Rectal haemorrhage [Unknown]
  - Gingival bleeding [Unknown]
  - Haematuria [Unknown]

NARRATIVE: CASE EVENT DATE: 20150308
